FAERS Safety Report 25334723 (Version 2)
Quarter: 2025Q2

REPORT INFORMATION
  Report Type: Report from Study
  Country: US (occurrence: US)
  Receive Date: 20250520
  Receipt Date: 20250616
  Transmission Date: 20250716
  Serious: Yes (Congenital Anomaly)
  Sender: GILEAD
  Company Number: US-GILEAD-2025-0712200

PATIENT
  Sex: Male
  Weight: 3.42 kg

DRUGS (1)
  1. BICTEGRAVIR\EMTRICITABINE\TENOFOVIR ALAFENAMIDE [Suspect]
     Active Substance: BICTEGRAVIR\EMTRICITABINE\TENOFOVIR ALAFENAMIDE
     Indication: HIV infection
     Dosage: 1 DOSAGE FORM, QD
     Route: 064

REACTIONS (2)
  - Foetal urinary tract dilatation [Not Recovered/Not Resolved]
  - Foetal exposure during pregnancy [Recovered/Resolved]
